FAERS Safety Report 12299433 (Version 4)
Quarter: 2018Q1

REPORT INFORMATION
  Report Type: Spontaneous
  Country: CA (occurrence: CA)
  Receive Date: 20160425
  Receipt Date: 20180112
  Transmission Date: 20180508
  Serious: No
  Sender: FDA-Public Use
  Company Number: CA-JAZZ-2015-CA-011827

PATIENT
  Age: 40 Year
  Sex: Female

DRUGS (11)
  1. XYREM [Suspect]
     Active Substance: SODIUM OXYBATE
     Dosage: 4.5G, BID
     Route: 048
     Dates: start: 20120709
  2. XYREM [Suspect]
     Active Substance: SODIUM OXYBATE
     Indication: CATAPLEXY
     Dosage: 2.25G, BID
     Route: 048
     Dates: start: 20120106, end: 20120110
  3. XYREM [Suspect]
     Active Substance: SODIUM OXYBATE
     Dosage: 3G, BID
     Route: 048
     Dates: start: 20120111, end: 20120208
  4. XYREM [Suspect]
     Active Substance: SODIUM OXYBATE
     Dosage: 7G, BID
     Route: 048
     Dates: start: 20141030, end: 20150822
  5. VENLAFAXINE [Concomitant]
     Active Substance: VENLAFAXINE HYDROCHLORIDE
  6. XYREM [Suspect]
     Active Substance: SODIUM OXYBATE
     Dosage: 6G, BID
     Route: 048
     Dates: start: 20140313, end: 20141029
  7. XYREM [Suspect]
     Active Substance: SODIUM OXYBATE
     Dosage: 8G, BID
     Route: 048
     Dates: start: 20150823, end: 20160103
  8. XYREM [Suspect]
     Active Substance: SODIUM OXYBATE
     Dosage: 16G
     Route: 048
     Dates: start: 20160104, end: 20160831
  9. XYREM [Suspect]
     Active Substance: SODIUM OXYBATE
     Dosage: 3.75G, BID
     Route: 048
     Dates: start: 20120209, end: 20120708
  10. XYREM [Suspect]
     Active Substance: SODIUM OXYBATE
     Dosage: 6 G, TID
     Route: 048
     Dates: start: 20160901
  11. MODAFINIL. [Concomitant]
     Active Substance: MODAFINIL

REACTIONS (4)
  - Hypersomnia [Recovered/Resolved]
  - Inappropriate schedule of drug administration [Unknown]
  - Insomnia [Recovered/Resolved]
  - Prescribed overdose [Unknown]

NARRATIVE: CASE EVENT DATE: 20141030
